FAERS Safety Report 8691548 (Version 4)
Quarter: 2013Q3

REPORT INFORMATION
  Report Type: Spontaneous
  Country: JP (occurrence: JP)
  Receive Date: 20120730
  Receipt Date: 20130808
  Transmission Date: 20140515
  Serious: Yes (Life-Threatening, Other)
  Sender: FDA-Public Use
  Company Number: JP-PFIZER INC-2012180754

PATIENT
  Age: 66 Year
  Sex: Male
  Weight: 50 kg

DRUGS (4)
  1. LYRICA [Suspect]
     Indication: POST HERPETIC NEURALGIA
     Dosage: 50 MG, 2X/DAY
     Route: 048
     Dates: start: 20120622, end: 20120622
  2. LYRICA [Suspect]
     Dosage: 25 MG, 2X/DAY
     Dates: start: 20120623, end: 20120628
  3. DUROTEP [Concomitant]
     Indication: CANCER PAIN
     Dosage: 2.1 MG, ONCE PER 3 DAYS
     Route: 062
     Dates: start: 20120614
  4. OXINORM [Concomitant]
     Indication: CANCER PAIN
     Dosage: 2.5 MG, AS NEEDED
     Route: 048

REACTIONS (2)
  - Pneumonia aspiration [Recovering/Resolving]
  - Dysphonia [Recovering/Resolving]
